FAERS Safety Report 9347960 (Version 2)
Quarter: 2013Q2

REPORT INFORMATION
  Report Type: Spontaneous
  Country: CA (occurrence: CA)
  Receive Date: 20130614
  Receipt Date: 20130626
  Transmission Date: 20140414
  Serious: Yes (Hospitalization)
  Sender: FDA-Public Use
  Company Number: CA-JNJFOC-20130601591

PATIENT
  Age: 62 Year
  Sex: Female
  Weight: 72.3 kg

DRUGS (6)
  1. DOXORUBICIN [Suspect]
     Indication: NON-HODGKIN^S LYMPHOMA
     Route: 042
  2. CYCLOPHOSPHAMIDE [Suspect]
     Indication: NON-HODGKIN^S LYMPHOMA
     Route: 065
     Dates: start: 20110827, end: 20110909
  3. PREDNISONE [Suspect]
     Indication: NON-HODGKIN^S LYMPHOMA
     Route: 065
  4. RITUXAN [Suspect]
     Indication: NON-HODGKIN^S LYMPHOMA
     Dosage: 1 DOSE
     Route: 041
     Dates: start: 20110826
  5. VINCRISTINE SULPHATE [Suspect]
     Indication: NON-HODGKIN^S LYMPHOMA
     Route: 065
  6. RITUXAN [Suspect]
     Indication: NON-HODGKIN^S LYMPHOMA
     Route: 058
     Dates: start: 20110919

REACTIONS (3)
  - Tumour lysis syndrome [Recovered/Resolved]
  - Anaemia [Unknown]
  - Pneumonia [Unknown]
